FAERS Safety Report 25108904 (Version 2)
Quarter: 2025Q2

REPORT INFORMATION
  Report Type: Spontaneous
  Country: US (occurrence: US)
  Receive Date: 20250322
  Receipt Date: 20250510
  Transmission Date: 20250716
  Serious: No
  Sender: SANOFI AVENTIS
  Company Number: US-SA-2025SA082304

PATIENT
  Age: 78 Year
  Sex: Male

DRUGS (7)
  1. DUPIXENT [Suspect]
     Active Substance: DUPILUMAB
     Indication: Asthma
     Dosage: 300 MG, QOW
     Route: 058
     Dates: start: 20250224, end: 20250422
  2. LOSARTAN [Concomitant]
     Active Substance: LOSARTAN
  3. LOSARTAN [Concomitant]
     Active Substance: LOSARTAN
  4. PREDNISONE [Concomitant]
     Active Substance: PREDNISONE
  5. LATANOPROST [Concomitant]
     Active Substance: LATANOPROST
  6. SINGULAIR [Concomitant]
     Active Substance: MONTELUKAST SODIUM
  7. AMLODIPINE [Concomitant]
     Active Substance: AMLODIPINE BESYLATE

REACTIONS (2)
  - Eosinophil count increased [Unknown]
  - Cough [Unknown]

NARRATIVE: CASE EVENT DATE: 20250101
